FAERS Safety Report 17700160 (Version 3)
Quarter: 2020Q3

REPORT INFORMATION
  Report Type: Report from Study
  Country: US (occurrence: US)
  Receive Date: 20200423
  Receipt Date: 20200706
  Transmission Date: 20201102
  Serious: No
  Sender: FDA-Public Use
  Company Number: NVSC2020US109311

PATIENT
  Sex: Female

DRUGS (1)
  1. COSENTYX [Suspect]
     Active Substance: SECUKINUMAB
     Indication: PSORIATIC ARTHROPATHY
     Dosage: 300 MG, OTHER (ONCE WEEKLY FOR 5 WEEKS THAN ONCE EVERY 4 WEEKS MAINTENANCE)
     Route: 058
     Dates: start: 20200326

REACTIONS (4)
  - Hypersensitivity [Unknown]
  - Hyperaesthesia [Unknown]
  - Injection site bruising [Unknown]
  - Psoriasis [Unknown]
